FAERS Safety Report 25244814 (Version 1)
Quarter: 2025Q2

REPORT INFORMATION
  Report Type: Spontaneous
  Country: US (occurrence: US)
  Receive Date: 20250428
  Receipt Date: 20250428
  Transmission Date: 20250717
  Serious: No
  Sender: AMARIN
  Company Number: US-Amarin Pharma  Inc-2025AMR000155

PATIENT
  Age: 61 Year
  Sex: Male

DRUGS (4)
  1. VASCEPA [Suspect]
     Active Substance: ICOSAPENT ETHYL
     Indication: Diabetes mellitus
  2. VASCEPA [Suspect]
     Active Substance: ICOSAPENT ETHYL
     Indication: Product used for unknown indication
  3. VASCEPA [Suspect]
     Active Substance: ICOSAPENT ETHYL
  4. VASCEPA [Suspect]
     Active Substance: ICOSAPENT ETHYL

REACTIONS (3)
  - Poor quality product administered [Unknown]
  - Circumstance or information capable of leading to medication error [Unknown]
  - Product physical issue [Unknown]

NARRATIVE: CASE EVENT DATE: 20250301
